FAERS Safety Report 20379879 (Version 8)
Quarter: 2025Q2

REPORT INFORMATION
  Report Type: Spontaneous
  Country: US (occurrence: US)
  Receive Date: 20220126
  Receipt Date: 20250515
  Transmission Date: 20250716
  Serious: Yes (Hospitalization, Other)
  Sender: PFIZER
  Company Number: US-PFIZER INC-2021241153

PATIENT
  Age: 76 Year
  Sex: Female

DRUGS (1)
  1. XELJANZ XR [Suspect]
     Active Substance: TOFACITINIB CITRATE
     Dosage: 11 MG, 1X/DAY

REACTIONS (8)
  - Pyoderma gangrenosum [Unknown]
  - Gastric operation [Unknown]
  - Deafness unilateral [Unknown]
  - Pyoderma [Unknown]
  - Concussion [Unknown]
  - Wound [Unknown]
  - Impaired healing [Unknown]
  - Gout [Unknown]

NARRATIVE: CASE EVENT DATE: 20210101
